FAERS Safety Report 9813736 (Version 1)
Quarter: 2014Q1

REPORT INFORMATION
  Report Type: Spontaneous
  Country: US (occurrence: None)
  Receive Date: 20140109
  Receipt Date: 20140109
  Transmission Date: 20141002
  Serious: Yes (Other)
  Sender: FDA-Public Use
  Company Number: None

PATIENT
  Age: 49 Year
  Sex: Female

DRUGS (8)
  1. TARCEVA [Suspect]
     Route: 048
     Dates: start: 20131212, end: 20140108
  2. FOLIC ACID [Concomitant]
  3. TRIAZOLAM [Concomitant]
  4. CLONIDINE [Concomitant]
  5. MORPHINE [Concomitant]
  6. POTASSIUM [Concomitant]
  7. LORTAB [Concomitant]
  8. MAGESTROL [Concomitant]

REACTIONS (2)
  - Diarrhoea [None]
  - Decreased appetite [None]
